FAERS Safety Report 9297767 (Version 1)
Quarter: 2013Q2

REPORT INFORMATION
  Report Type: Spontaneous
  Country: FR (occurrence: FR)
  Receive Date: 20130520
  Receipt Date: 20130520
  Transmission Date: 20140414
  Serious: Yes (Hospitalization)
  Sender: FDA-Public Use
  Company Number: PHHY2013FR049593

PATIENT
  Age: 71 Year
  Sex: Male

DRUGS (6)
  1. SANDOSTATINE [Suspect]
     Dosage: 25 UG/HOUR, UNK
     Route: 042
     Dates: start: 20121206, end: 20121215
  2. SANDOSTATINE [Suspect]
     Dosage: 100 UG, TID
     Route: 058
     Dates: start: 20121216, end: 20121227
  3. INEXIUM//ESOMEPRAZOLE SODIUM [Concomitant]
     Dosage: UNK UKN, UNK
  4. LOVENOX [Concomitant]
     Dosage: UNK UKN, UNK
  5. CREON [Concomitant]
     Dosage: UNK UKN, UNK
  6. ATARAX//HYDROXYZINE [Concomitant]
     Dosage: UNK UKN, UNK

REACTIONS (2)
  - Ischaemic stroke [Recovered/Resolved with Sequelae]
  - Hemiplegia [Recovered/Resolved with Sequelae]
